FAERS Safety Report 8334262-5 (Version None)
Quarter: 2012Q2

REPORT INFORMATION
  Report Type: 
  Country: None (occurrence: None)
  Receive Date: 20120503
  Receipt Date: 20120427
  Transmission Date: 20120825
  Serious: Yes (Other)
  Sender: FDA-Public Use
  Company Number: PHHY2012GB036457

PATIENT
  Age: 52 Year
  Sex: Female
  Weight: 76 kg

DRUGS (5)
  1. BISOPROLOL FUMARATE [Suspect]
     Indication: HYPERTENSION
     Dosage: 10 MG, QD
     Route: 048
     Dates: start: 20120406
  2. METHOTREXATE [Concomitant]
     Indication: ARTHRITIS
     Dosage: 5 MG, QW
     Route: 048
     Dates: start: 20101029
  3. LANSOPRAZOLE [Concomitant]
     Dosage: 15 MG, QD
     Route: 048
     Dates: start: 20120320
  4. METFORMIN HCL [Concomitant]
     Indication: DIABETES MELLITUS
     Dosage: 1000 MG, BID
     Route: 048
     Dates: start: 20111118
  5. MELOXICAM [Concomitant]
     Indication: ARTHRITIS
     Dosage: 15 MG, QD
     Dates: start: 20120320

REACTIONS (2)
  - DYSPEPSIA [None]
  - GASTROOESOPHAGEAL REFLUX DISEASE [None]
